FAERS Safety Report 23958373 (Version 1)
Quarter: 2024Q2

REPORT INFORMATION
  Report Type: Spontaneous
  Country: US (occurrence: US)
  Receive Date: 20240610
  Receipt Date: 20240610
  Transmission Date: 20240716
  Serious: Yes (Other)
  Sender: FDA-Public Use
  Company Number: US-PFIZER INC-202400189352

PATIENT
  Age: 49 Year
  Sex: Female

DRUGS (1)
  1. XELJANZ XR [Suspect]
     Active Substance: TOFACITINIB CITRATE
     Indication: Colitis ulcerative
     Dosage: TAKE 1 TABLET(S) EVERY DAY BY ORAL ROUTE AS DIRECTED FOR 30 DAYS
     Route: 048

REACTIONS (2)
  - Colitis ulcerative [Unknown]
  - Arthralgia [Unknown]
